FAERS Safety Report 20951705 (Version 2)
Quarter: 2022Q2

REPORT INFORMATION
  Report Type: Spontaneous
  Country: TW (occurrence: TW)
  Receive Date: 20220613
  Receipt Date: 20220613
  Transmission Date: 20220721
  Serious: Yes (Death, Other)
  Sender: FDA-Public Use
  Company Number: TW-PFIZER INC-202200790056

PATIENT
  Age: 58 Year
  Sex: Male

DRUGS (4)
  1. DOXORUBICIN HYDROCHLORIDE [Suspect]
     Active Substance: DOXORUBICIN HYDROCHLORIDE
     Indication: Anaplastic thyroid cancer
     Dosage: 60 MG/M2, CYCLIC, FOUR CYCLES
     Route: 042
  2. PEMBROLIZUMAB [Suspect]
     Active Substance: PEMBROLIZUMAB
     Indication: Anaplastic thyroid cancer
     Dosage: 200 MG, EVERY 3 WEEKS
  3. LENVATINIB [Suspect]
     Active Substance: LENVATINIB
     Indication: Anaplastic thyroid cancer
     Dosage: 20 MG/DAY, ALTERNATE DAY
     Route: 048
  4. LENVATINIB [Suspect]
     Active Substance: LENVATINIB
     Dosage: 10 MG/DAY, ALTERNATE DAY
     Route: 048

REACTIONS (7)
  - Pneumonia aspiration [Fatal]
  - Septic shock [Fatal]
  - Neutropenia [Unknown]
  - Tracheal fistula [Unknown]
  - Herpes virus infection [Unknown]
  - Nausea [Unknown]
  - Vomiting [Unknown]
